FAERS Safety Report 6679188-8 (Version None)
Quarter: 2010Q2

REPORT INFORMATION
  Report Type: 
  Country: None (occurrence: None)
  Receive Date: 20100409
  Receipt Date: 20100329
  Transmission Date: 20101027
  Serious: Yes (Congenital Anomaly, Other)
  Sender: FDA-Public Use
  Company Number: 1000012778

PATIENT
  Age: 7 Year
  Sex: Male
  Weight: 16.5 kg

DRUGS (2)
  1. CARBAMAZEPINE [Suspect]
     Dosage: 400 MG (200 MG, 2 IN 1 D), TRANSPLACENTAL
     Route: 064
  2. PHENOBARBITAL TAB [Suspect]
     Dosage: 200 MG (100 MG, 2 IN 1 D), TRANSPLACENTAL
     Route: 064

REACTIONS (9)
  - BODY HEIGHT BELOW NORMAL [None]
  - GROWTH RETARDATION [None]
  - HYPERTELORISM OF ORBIT [None]
  - HYPOSPADIAS [None]
  - LARGE FOR DATES BABY [None]
  - LOW SET EARS [None]
  - MATERNAL DRUGS AFFECTING FOETUS [None]
  - NASAL DISORDER [None]
  - PROMINENT EPICANTHAL FOLDS [None]
